FAERS Safety Report 10101362 (Version 1)
Quarter: 2014Q2

REPORT INFORMATION
  Report Type: Spontaneous
  Country: US (occurrence: US)
  Receive Date: 20140424
  Receipt Date: 20140424
  Transmission Date: 20141212
  Serious: No
  Sender: FDA-Public Use
  Company Number: US-PFIZER INC-2014112983

PATIENT
  Age: 65 Year
  Sex: Female
  Weight: 65.76 kg

DRUGS (6)
  1. NEURONTIN [Suspect]
     Indication: BIPOLAR DISORDER
     Dosage: 200 MG, 2X/DAY
     Dates: start: 20140331
  2. NEURONTIN [Suspect]
     Dosage: 200 MG, 3X/DAY
     Dates: start: 201404, end: 20140420
  3. LEVOXYL [Concomitant]
     Indication: HYPERTHYROIDISM
     Dosage: 75 UG, DAILY
  4. ABILIFY [Concomitant]
     Indication: BIPOLAR DISORDER
     Dosage: 30 MG, UNK
  5. CLARITIN [Concomitant]
     Indication: SLEEP DISORDER
     Dosage: VARIED FROM 2.5MG TO 5 MG DAILY
  6. CLARITIN [Concomitant]
     Indication: HYPERSENSITIVITY

REACTIONS (8)
  - Off label use [Unknown]
  - Drug intolerance [Unknown]
  - Chest pain [Recovering/Resolving]
  - Dizziness [Recovering/Resolving]
  - Palpitations [Recovering/Resolving]
  - Abnormal dreams [Unknown]
  - Memory impairment [Unknown]
  - Insomnia [Unknown]
